FAERS Safety Report 24679119 (Version 5)
Quarter: 2025Q1

REPORT INFORMATION
  Report Type: Spontaneous
  Country: US (occurrence: US)
  Receive Date: 20241129
  Receipt Date: 20250218
  Transmission Date: 20250409
  Serious: No
  Sender: NOVARTIS
  Company Number: US-002147023-NVSC2024US226458

PATIENT
  Sex: Female

DRUGS (2)
  1. COSENTYX [Suspect]
     Active Substance: SECUKINUMAB
     Indication: Product used for unknown indication
     Dosage: 300 MG, QMO (MONTHLY, INJECTION)
     Route: 065
  2. COSENTYX [Suspect]
     Active Substance: SECUKINUMAB
     Route: 065

REACTIONS (7)
  - Product contamination physical [Unknown]
  - Incorrect dose administered by device [Unknown]
  - Product distribution issue [Unknown]
  - Device defective [Unknown]
  - Device difficult to use [Unknown]
  - Device physical property issue [Unknown]
  - Asthenia [Unknown]
